FAERS Safety Report 5647168-7 (Version None)
Quarter: 2008Q1

REPORT INFORMATION
  Report Type: 
  Country: None (occurrence: None)
  Receive Date: 20080228
  Receipt Date: 20080228
  Transmission Date: 20080703
  Serious: Yes (Hospitalization)
  Sender: FDA-Public Use
  Company Number: None

PATIENT
  Sex: Male
  Weight: 65.5 kg

DRUGS (2)
  1. CARBOPLATIN [Suspect]
     Dosage: 92 MG
  2. TAXOL [Suspect]
     Dosage: 92 MG

REACTIONS (11)
  - BLOOD POTASSIUM DECREASED [None]
  - BLOOD SODIUM DECREASED [None]
  - DEHYDRATION [None]
  - FLATULENCE [None]
  - INTESTINAL DILATATION [None]
  - INTUSSUSCEPTION [None]
  - NO THERAPEUTIC RESPONSE [None]
  - RECTAL HAEMORRHAGE [None]
  - RENAL FAILURE ACUTE [None]
  - SMALL INTESTINAL OBSTRUCTION [None]
  - VASCULAR CALCIFICATION [None]
